FAERS Safety Report 10579745 (Version 3)
Quarter: 2015Q1

REPORT INFORMATION
  Report Type: Report from Study
  Country: JP (occurrence: JP)
  Receive Date: 20141112
  Receipt Date: 20150113
  Transmission Date: 20150720
  Serious: Yes (Death, Other)
  Sender: FDA-Public Use
  Company Number: JP-ALEXION PHARMACEUTICALS INC.-A201404268

PATIENT

DRUGS (5)
  1. FUNGUARD [Concomitant]
     Active Substance: MICAFUNGIN SODIUM
     Indication: PRODUCT USED FOR UNKNOWN INDICATION
     Dosage: 12 MG, UNK
     Route: 042
     Dates: start: 20140916, end: 20140916
  2. GASTER [Concomitant]
     Active Substance: FAMOTIDINE
     Indication: PRODUCT USED FOR UNKNOWN INDICATION
     Dosage: 2 MG, UNK
     Route: 042
     Dates: start: 20140914, end: 20140918
  3. SOLIRIS [Suspect]
     Active Substance: ECULIZUMAB
     Indication: HAEMOLYTIC URAEMIC SYNDROME
     Dosage: 300 MG, QW
     Route: 042
     Dates: start: 20140916, end: 20140916
  4. MENATETRENONE [Concomitant]
     Active Substance: MENATETRENONE
     Indication: PRODUCT USED FOR UNKNOWN INDICATION
     Dosage: 3 MG, QD
     Route: 042
     Dates: start: 20140914, end: 20140918
  5. VEEN 3G [Concomitant]
     Indication: PRODUCT USED FOR UNKNOWN INDICATION
     Dosage: 40 MG, UNK
     Route: 042
     Dates: start: 20140910, end: 20140918

REACTIONS (13)
  - Respiratory failure [Fatal]
  - Ascites [None]
  - Bradycardia [None]
  - Acute hepatic failure [Fatal]
  - Hypotension [None]
  - Renal failure [Fatal]
  - Heart rate increased [None]
  - Depressed level of consciousness [None]
  - Epistaxis [None]
  - Haemolysis [None]
  - Pulmonary haemorrhage [Fatal]
  - Dehydration [None]
  - Tracheal haemorrhage [None]
